FAERS Safety Report 12984161 (Version 1)
Quarter: 2016Q4

REPORT INFORMATION
  Report Type: Spontaneous
  Country: US (occurrence: US)
  Receive Date: 20161129
  Receipt Date: 20161129
  Transmission Date: 20170207
  Serious: Yes (Other)
  Sender: FDA-Public Use
  Company Number: US-PFIZER INC-2016551887

PATIENT
  Age: 16 Year
  Sex: Female

DRUGS (1)
  1. SIROLIMUS. [Suspect]
     Active Substance: SIROLIMUS
     Indication: ARTERIOVENOUS MALFORMATION
     Dosage: 0.8 MG/M2, 2X/DAY (0.8 MG/M2/DOSE, DOSE TITRATED TO 5-10 NG/ML)

REACTIONS (3)
  - Product use issue [Unknown]
  - Bone infarction [Unknown]
  - Hypercholesterolaemia [Recovering/Resolving]
